FAERS Safety Report 25148537 (Version 1)
Quarter: 2025Q2

REPORT INFORMATION
  Report Type: Spontaneous
  Country: US (occurrence: US)
  Receive Date: 20250402
  Receipt Date: 20250402
  Transmission Date: 20250716
  Serious: No
  Sender: ROCHE
  Company Number: US-ROCHE-10000241499

PATIENT
  Sex: Female

DRUGS (4)
  1. XOLAIR [Suspect]
     Active Substance: OMALIZUMAB
     Indication: Asthma
     Route: 058
     Dates: start: 202210
  2. XOLAIR [Suspect]
     Active Substance: OMALIZUMAB
     Indication: Hidradenitis
  3. XOLAIR [Suspect]
     Active Substance: OMALIZUMAB
     Indication: Psoriatic arthropathy
  4. BIMZELX [BIMEKIZUMAB] [Concomitant]

REACTIONS (1)
  - Ankylosing spondylitis [Unknown]
